FAERS Safety Report 22000833 (Version 1)
Quarter: 2023Q1

REPORT INFORMATION
  Report Type: Spontaneous
  Country: US (occurrence: US)
  Receive Date: 20230216
  Receipt Date: 20230216
  Transmission Date: 20230418
  Serious: Yes (Other)
  Sender: FDA-Public Use
  Company Number: US-AMGEN-USASP2023024484

PATIENT
  Age: 68 Year
  Sex: Male

DRUGS (3)
  1. MVASI [Suspect]
     Active Substance: BEVACIZUMAB-AWWB
     Indication: Product used for unknown indication
     Dosage: UNK
     Route: 065
  2. LONSURF [Suspect]
     Active Substance: TIPIRACIL HYDROCHLORIDE\TRIFLURIDINE
     Indication: Metastases to lung
     Dosage: 150 MILLIGRAM, QD (120 MILLIGRAM, QD (75 MILLIGRAM Q12HR))
     Route: 048
  3. LONSURF [Suspect]
     Active Substance: TIPIRACIL HYDROCHLORIDE\TRIFLURIDINE
     Indication: Metastases to lymph nodes
     Dosage: 120 MILLIGRAM, QD (60 MILLIGRAM Q12HR)
     Route: 048

REACTIONS (2)
  - Disease progression [Unknown]
  - Platelet count decreased [Unknown]
